FAERS Safety Report 10185042 (Version 2)
Quarter: 2014Q2

REPORT INFORMATION
  Report Type: Spontaneous
  Country: CN (occurrence: CN)
  Receive Date: 20140521
  Receipt Date: 20140521
  Transmission Date: 20141212
  Serious: Yes (Hospitalization)
  Sender: FDA-Public Use
  Company Number: PHHY2013CN107332

PATIENT
  Age: 65 Year
  Sex: Male
  Weight: 61 kg

DRUGS (3)
  1. SANDOSTATIN [Suspect]
     Indication: HAEMOBILIA
     Dosage: 0.6 MG, QD PER 42ML 0.9%
     Route: 042
     Dates: start: 20130911, end: 20130916
  2. SANDOSTATIN [Suspect]
     Indication: OFF LABEL USE
  3. NUTRITION SUPPLEMENTS [Concomitant]

REACTIONS (2)
  - Amylase increased [Recovered/Resolved]
  - Product quality issue [Unknown]
